FAERS Safety Report 4749119-6 (Version None)
Quarter: 2005Q3

REPORT INFORMATION
  Report Type: 
  Country: None (occurrence: None)
  Receive Date: 20050819
  Receipt Date: 20050810
  Transmission Date: 20060218
  Serious: Yes (Disabling)
  Sender: FDA-Public Use
  Company Number: AU-ROCHE-413693

PATIENT
  Age: 62 Year
  Sex: Male

DRUGS (13)
  1. CYMEVENE [Suspect]
     Route: 042
     Dates: start: 20050708, end: 20050727
  2. CYCLOSPORINE [Concomitant]
  3. PREDNISOLONE [Concomitant]
     Dosage: TAKEN DAILY.
  4. PRAZOSIN HCL [Concomitant]
     Dosage: FREQUENCY REPORTED AS 'IDS'
  5. RANITIDINE HCL [Concomitant]
  6. SLOW-K [Concomitant]
  7. MAGMIN [Concomitant]
     Dosage: FREQUENCY REPORTED AS 'IDS'
  8. DILTIAZEM CD [Concomitant]
     Dosage: TAKEN AT NIGHT.
  9. ATENOLOL [Concomitant]
     Dosage: FREQUENCY REPORTED AS 'MIDI'
  10. EZETIMIBE [Concomitant]
     Dosage: FREQUENCY REPORTED AS 'MIDI'
  11. BACTRIM DS [Concomitant]
  12. MYCOPHENOLATE [Concomitant]
  13. SANDOZ PHOSPHATE [Concomitant]
     Dosage: FREQUENCY REPORTED AS 'IDS'

REACTIONS (3)
  - AREFLEXIA [None]
  - MUSCLE SPASMS [None]
  - MYALGIA [None]
